FAERS Safety Report 6936275-4 (Version None)
Quarter: 2010Q3

REPORT INFORMATION
  Report Type: 
  Country: None (occurrence: None)
  Receive Date: 20100817
  Receipt Date: 20100420
  Transmission Date: 20110219
  Serious: No
  Sender: FDA-Public Use
  Company Number: WAES 1003USA00002

PATIENT
  Age: 33 Year
  Sex: Male
  Weight: 80.2867 kg

DRUGS (3)
  1. ISENTRESS [Suspect]
     Indication: HIV INFECTION
     Dosage: 400 MG/BID/PO
     Route: 048
  2. COMBIVIR [Concomitant]
  3. INTELENCE [Concomitant]

REACTIONS (2)
  - NAUSEA [None]
  - VOMITING [None]
